FAERS Safety Report 5267667-X (Version None)
Quarter: 2007Q1

REPORT INFORMATION
  Report Type: 
  Country: None (occurrence: None)
  Receive Date: 20070316
  Receipt Date: 20070306
  Transmission Date: 20070707
  Serious: Yes (Hospitalization, Other)
  Sender: FDA-Public Use
  Company Number: JP-PFIZER INC-2007010559

PATIENT
  Sex: Female
  Weight: 48.9 kg

DRUGS (8)
  1. VIBRAMYCIN (TABLETS) [Suspect]
     Indication: PEMPHIGOID
     Dosage: DAILY DOSE:100MG-FREQ:QD
     Route: 048
     Dates: start: 20070119, end: 20070124
  2. NICOTINAMIDE [Suspect]
     Indication: PEMPHIGOID
     Route: 048
     Dates: start: 20070119, end: 20070124
  3. AMARYL [Concomitant]
     Route: 048
  4. CALBLOCK [Concomitant]
     Route: 048
     Dates: end: 20070128
  5. DIART [Concomitant]
     Route: 048
     Dates: end: 20070207
  6. VALSARTAN [Concomitant]
     Route: 048
     Dates: end: 20070124
  7. BASEN [Concomitant]
     Route: 048
     Dates: end: 20070124
  8. LIPITOR [Concomitant]
     Route: 048
     Dates: end: 20070123

REACTIONS (1)
  - RENAL FAILURE ACUTE [None]
